FAERS Safety Report 17796386 (Version 1)
Quarter: 2020Q2

REPORT INFORMATION
  Report Type: Spontaneous
  Country: SI (occurrence: SI)
  Receive Date: 20200517
  Receipt Date: 20200517
  Transmission Date: 20200714
  Serious: Yes (Other)
  Sender: FDA-Public Use
  Company Number: SI-AMGEN-SVNSP2020079379

PATIENT

DRUGS (1)
  1. AIMOVIG [Suspect]
     Active Substance: ERENUMAB-AOOE
     Indication: PRODUCT USED FOR UNKNOWN INDICATION
     Route: 065

REACTIONS (15)
  - Anxiety [Unknown]
  - Upper respiratory tract infection [Unknown]
  - Fatigue [Unknown]
  - Muscle spasms [Unknown]
  - Application site reaction [Unknown]
  - Erythema [Unknown]
  - Muscle contractions involuntary [Unknown]
  - Restlessness [Unknown]
  - Sinusitis [Unknown]
  - Swelling [Unknown]
  - Haematoma [Unknown]
  - Pain [Unknown]
  - Arthralgia [Unknown]
  - Viral infection [Unknown]
  - Constipation [Unknown]
